FAERS Safety Report 26191812 (Version 1)
Quarter: 2025Q4

REPORT INFORMATION
  Report Type: Report from Study
  Country: GB (occurrence: GB)
  Receive Date: 20251223
  Receipt Date: 20251223
  Transmission Date: 20260118
  Serious: Yes (Life-Threatening, Other)
  Sender: BIOVITRUM
  Company Number: GB-BIOVITRUM-2025-GB-017984

PATIENT
  Age: 26 Year
  Sex: Male

DRUGS (1)
  1. KINERET [Suspect]
     Active Substance: ANAKINRA
     Indication: Still^s disease
     Dosage: OD (DAILY)
     Route: 058

REACTIONS (3)
  - Near death experience [Unknown]
  - Blood test abnormal [Unknown]
  - Product use issue [Unknown]
